FAERS Safety Report 16936776 (Version 1)
Quarter: 2019Q4

REPORT INFORMATION
  Report Type: Spontaneous
  Country: CN (occurrence: CN)
  Receive Date: 20191018
  Receipt Date: 20191018
  Transmission Date: 20200122
  Serious: Yes (Other)
  Sender: FDA-Public Use
  Company Number: CN-BAXTER-2019BAX020275

PATIENT
  Age: 34 Year
  Sex: Female
  Weight: 70 kg

DRUGS (3)
  1. 5% GLUCOSE AND 0.9% SODIUM CHLORIDE INJECTION [Suspect]
     Active Substance: DEXTROSE\SODIUM CHLORIDE
     Indication: NUTRITIONAL SUPPLEMENTATION
     Route: 041
     Dates: start: 20190830, end: 20190830
  2. OXYTOCIN. [Suspect]
     Active Substance: OXYTOCIN
     Indication: MUSCLE CONTRACTIONS INVOLUNTARY
     Dosage: OXYTOCIN 20 U + 0.9% NS 500 ML?DOSE: 20 UNITS
     Route: 041
     Dates: start: 20190830, end: 20190830
  3. 0.9% SODIUM CHLORIDE INJECTION [Suspect]
     Active Substance: SODIUM CHLORIDE
     Indication: MEDICATION DILUTION
     Dosage: OXYTOCIN 20 U + 0.9% NS 500 ML
     Route: 041
     Dates: start: 20190830, end: 20190830

REACTIONS (6)
  - Pallor [Unknown]
  - Uterine pain [Unknown]
  - Temperature intolerance [Recovering/Resolving]
  - Head discomfort [Unknown]
  - Tachypnoea [Unknown]
  - Chills [Recovered/Resolved]

NARRATIVE: CASE EVENT DATE: 20190830
